FAERS Safety Report 9606983 (Version 6)
Quarter: 2014Q2

REPORT INFORMATION
  Report Type: Report from Study
  Country: US (occurrence: US)
  Receive Date: 20131009
  Receipt Date: 20140404
  Transmission Date: 20141212
  Serious: Yes (Other)
  Sender: FDA-Public Use
  Company Number: US-ROCHE-1248573

PATIENT
  Age: 55 Year
  Sex: Male
  Weight: 107.14 kg

DRUGS (4)
  1. PEGASYS [Suspect]
     Indication: CHRONIC HEPATITIS C
     Route: 058
     Dates: start: 20130702, end: 20140114
  2. RIBASPHERE [Suspect]
     Indication: CHRONIC HEPATITIS C
     Dosage: 600/400MG
     Route: 048
     Dates: start: 20130702
  3. RIBASPHERE [Suspect]
     Dosage: DIVIDED DOSES 400/200.
     Route: 048
     Dates: start: 20130924, end: 20140114
  4. BOCEPREVIR [Suspect]
     Indication: CHRONIC HEPATITIS C
     Dosage: STARTED AT WEEK 5
     Route: 048
     Dates: start: 20130730, end: 20140114

REACTIONS (14)
  - Nausea [Unknown]
  - Dizziness [Unknown]
  - Blood pressure increased [Unknown]
  - Skin ulcer [Unknown]
  - Depression [Unknown]
  - Headache [Unknown]
  - Vomiting [Unknown]
  - Platelet count decreased [Unknown]
  - Anaemia [Unknown]
  - Fatigue [Unknown]
  - Blood calcium decreased [Unknown]
  - Vertigo [Unknown]
  - Malaise [Unknown]
  - Irritability [Unknown]
